FAERS Safety Report 6291313-X (Version None)
Quarter: 2009Q3

REPORT INFORMATION
  Report Type: 
  Country: None (occurrence: None)
  Receive Date: 20090730
  Receipt Date: 20090727
  Transmission Date: 20100115
  Serious: Yes (Life-Threatening, Hospitalization, Disabling, Other)
  Sender: FDA-Public Use
  Company Number: IN-MERCK-0907USA04882

PATIENT
  Age: 54 Year
  Sex: Female
  Weight: 65 kg

DRUGS (1)
  1. INVANZ [Suspect]
     Indication: PERITONITIS BACTERIAL
     Route: 042
     Dates: start: 20090715, end: 20090719

REACTIONS (3)
  - DIARRHOEA [None]
  - FREQUENT BOWEL MOVEMENTS [None]
  - GASTROINTESTINAL CANDIDIASIS [None]
